FAERS Safety Report 5342197-5 (Version None)
Quarter: 2007Q2

REPORT INFORMATION
  Report Type: 
  Country: None (occurrence: None)
  Receive Date: 20070601
  Receipt Date: 20070526
  Transmission Date: 20071010
  Serious: Yes (Other)
  Sender: FDA-Public Use
  Company Number: US-ASTRAZENECA-2007UW12384

PATIENT
  Age: 56 Year
  Sex: Female

DRUGS (4)
  1. FASLODEX [Suspect]
     Route: 030
  2. AREDIA [Interacting]
  3. EFFEXOR [Concomitant]
  4. LISINOPRIL [Concomitant]
     Route: 048

REACTIONS (7)
  - CHILLS [None]
  - DYSPNOEA [None]
  - INJECTION SITE IRRITATION [None]
  - RASH [None]
  - SWOLLEN TONGUE [None]
  - THROAT TIGHTNESS [None]
  - URTICARIA [None]
